FAERS Safety Report 26076471 (Version 1)
Quarter: 2025Q4

REPORT INFORMATION
  Report Type: Spontaneous
  Country: US (occurrence: US)
  Receive Date: 20251121
  Receipt Date: 20251121
  Transmission Date: 20260117
  Serious: Yes (Other)
  Sender: PFIZER
  Company Number: US-PFIZER INC-202500226888

PATIENT
  Age: 76 Year
  Sex: Male
  Weight: 98.2 kg

DRUGS (1)
  1. VYNDAMAX [Suspect]
     Active Substance: TAFAMIDIS
     Dosage: TAKE ONE CAPSULE BY MOUTH, ONCE DAILY
     Route: 048

REACTIONS (2)
  - Pulmonary hypertension [Unknown]
  - Chronic left ventricular failure [Unknown]
